FAERS Safety Report 4776319-1 (Version None)
Quarter: 2005Q3

REPORT INFORMATION
  Report Type: 
  Country: None (occurrence: None)
  Receive Date: 20050921
  Receipt Date: 20050912
  Transmission Date: 20060218
  Serious: Yes (Hospitalization)
  Sender: FDA-Public Use
  Company Number: 2005126602

PATIENT
  Sex: Male

DRUGS (1)
  1. PREGABALIN (PREGABALIN) [Suspect]
     Indication: NEURALGIA
     Dosage: 225 MG (75 MG, 3 IN 1 D), ORAL
     Route: 048
     Dates: start: 20050607, end: 20050714

REACTIONS (3)
  - DYSPNOEA [None]
  - LOCALISED OEDEMA [None]
  - PHARYNGEAL OEDEMA [None]
